FAERS Safety Report 8209645-4 (Version None)
Quarter: 2012Q1

REPORT INFORMATION
  Report Type: 
  Country: None (occurrence: None)
  Receive Date: 20120314
  Receipt Date: 20120301
  Transmission Date: 20120608
  Serious: Yes (Hospitalization)
  Sender: FDA-Public Use
  Company Number: DE-MYLANLABS-2012S1004656

PATIENT
  Age: 2 Year
  Sex: Male

DRUGS (1)
  1. PAROXETINE [Suspect]
     Dates: start: 20120301

REACTIONS (2)
  - OVERDOSE [None]
  - ACCIDENTAL EXPOSURE [None]
